FAERS Safety Report 6769162-5 (Version None)
Quarter: 2010Q2

REPORT INFORMATION
  Report Type: 
  Country: None (occurrence: None)
  Receive Date: 20100603
  Receipt Date: 20100525
  Transmission Date: 20101027
  Serious: Yes (Other)
  Sender: FDA-Public Use
  Company Number: 2009SP001942

PATIENT
  Age: 49 Year
  Sex: Female
  Weight: 46.3 kg

DRUGS (7)
  1. BOCEPREVIR (SCH-503034) [Suspect]
     Indication: HEPATITIS C
     Dosage: 800 MG;TID;PO
     Route: 048
     Dates: start: 20081204, end: 20090122
  2. PEG-INTRON [Suspect]
     Indication: HEPATITIS C
     Dosage: 64 MCG;QW; SC
     Route: 058
     Dates: start: 20081106
  3. REBETOL [Suspect]
     Indication: HEPATITIS C
     Dosage: 400 MG;BID; PO
     Route: 048
     Dates: start: 20081106
  4. GRANOCYTE (CON.) [Concomitant]
  5. NEORECORMON (CON.) [Concomitant]
  6. DIPROSONE (CON.) [Concomitant]
  7. DEXERYL (CON.) [Concomitant]

REACTIONS (10)
  - ACTIVITIES OF DAILY LIVING IMPAIRED [None]
  - FATIGUE [None]
  - FEEDING DISORDER [None]
  - GENERAL PHYSICAL HEALTH DETERIORATION [None]
  - HAEMOGLOBIN DECREASED [None]
  - INFLUENZA [None]
  - LUNG INFECTION [None]
  - PRODUCTIVE COUGH [None]
  - SUPERINFECTION [None]
  - VIRAL INFECTION [None]
